FAERS Safety Report 21861491 (Version 1)
Quarter: 2023Q1

REPORT INFORMATION
  Report Type: Spontaneous
  Country: None (occurrence: US)
  Receive Date: 20230113
  Receipt Date: 20230113
  Transmission Date: 20230418
  Serious: Yes (Other)
  Sender: FDA-Public Use
  Company Number: US-Breckenridge Pharmaceutical, Inc.-2136702

PATIENT
  Age: 57 Year
  Sex: Female
  Weight: 127.27 kg

DRUGS (1)
  1. DULOXETINE [Suspect]
     Active Substance: DULOXETINE
     Indication: Neuralgia
     Route: 048

REACTIONS (10)
  - Depression [Unknown]
  - Therapeutic product ineffective [Unknown]
  - Somnolence [Unknown]
  - Fatigue [Unknown]
  - Crying [Unknown]
  - Confusional state [Unknown]
  - Fatigue [Unknown]
  - Pain [Unknown]
  - Muscle spasms [Unknown]
  - Drug withdrawal syndrome [Unknown]
